FAERS Safety Report 7700054-0 (Version None)
Quarter: 2011Q3

REPORT INFORMATION
  Report Type: 
  Country: None (occurrence: None)
  Receive Date: 20110822
  Receipt Date: 20110809
  Transmission Date: 20111222
  Serious: Yes (Hospitalization)
  Sender: FDA-Public Use
  Company Number: AT-ELI_LILLY_AND_COMPANY-AT201106005854

PATIENT
  Age: 8 Year
  Sex: Male

DRUGS (7)
  1. STRATTERA [Suspect]
     Dosage: UNK
  2. STRATTERA [Suspect]
     Indication: ATTENTION DEFICIT/HYPERACTIVITY DISORDER
     Dosage: 40 MG, QD
  3. ZIPRASIDONE HYDROCHLORIDE [Concomitant]
     Dosage: 40 MG, BID
  4. STRATTERA [Suspect]
     Dosage: 10 MG, UNKNOWN
  5. STRATTERA [Suspect]
     Dosage: 18 MG, UNKNOWN
  6. STRATTERA [Suspect]
     Dosage: UNK
  7. NOZINAN [Concomitant]
     Dosage: 20 GTT, TID

REACTIONS (2)
  - DRUG LEVEL INCREASED [None]
  - CONDITION AGGRAVATED [None]
